FAERS Safety Report 9661885 (Version 1)
Quarter: 2013Q4

REPORT INFORMATION
  Report Type: Report from Study
  Country: US (occurrence: US)
  Receive Date: 20131031
  Receipt Date: 20131031
  Transmission Date: 20140711
  Serious: Yes (Hospitalization, Other)
  Sender: FDA-Public Use
  Company Number: US-ROCHE-1293560

PATIENT
  Sex: Female

DRUGS (6)
  1. XELODA [Suspect]
     Indication: COLON CANCER
     Dosage: 2 WEEKS ON 1 WEEK OFF; STARTS ON DAY WITH 2 CHEMOS
     Route: 048
     Dates: start: 2013
  2. OXALIPLATIN [Concomitant]
     Indication: COLON CANCER
     Dosage: Q 3 WEEKS VIA PORT
     Route: 042
     Dates: start: 2013
  3. MORPHINE [Concomitant]
  4. PHENERGAN [Concomitant]
     Dosage: AS NEEDED
     Route: 065
  5. ZOFRAN [Concomitant]
     Dosage: AS NEEDED
     Route: 065
  6. PRILOSEC [Concomitant]
     Route: 065
     Dates: start: 2013, end: 2013

REACTIONS (12)
  - Ovarian cyst ruptured [Recovered/Resolved]
  - Thrombosis [Recovered/Resolved]
  - Haemorrhage [Recovered/Resolved]
  - Decreased appetite [Recovered/Resolved]
  - Weight decreased [Recovered/Resolved]
  - Paraesthesia [Not Recovered/Not Resolved]
  - Paraesthesia [Not Recovered/Not Resolved]
  - Metastatic neoplasm [Not Recovered/Not Resolved]
  - Temperature intolerance [Not Recovered/Not Resolved]
  - Malaise [Unknown]
  - Fatigue [Unknown]
  - Ovarian cyst [Unknown]
